FAERS Safety Report 17907605 (Version 1)
Quarter: 2020Q2

REPORT INFORMATION
  Report Type: Spontaneous
  Country: AR (occurrence: AR)
  Receive Date: 20200617
  Receipt Date: 20200617
  Transmission Date: 20200714
  Serious: Yes (Other)
  Sender: FDA-Public Use
  Company Number: AR-PFIZER INC-2020233135

PATIENT
  Age: 54 Year
  Sex: Female

DRUGS (1)
  1. AXITINIB [Suspect]
     Active Substance: AXITINIB
     Indication: RENAL CANCER STAGE IV
     Dosage: UNK, APPROXIMATELY TWO AND A HALF YEARS

REACTIONS (2)
  - Coronary artery disease [Unknown]
  - Neoplasm progression [Unknown]
